FAERS Safety Report 12915209 (Version 2)
Quarter: 2017Q1

REPORT INFORMATION
  Report Type: Spontaneous
  Country: US (occurrence: US)
  Receive Date: 20161106
  Receipt Date: 20170216
  Transmission Date: 20170428
  Serious: No
  Sender: FDA-Public Use
  Company Number: US-RELYPSA-RLY2016002649

PATIENT
  Sex: Female

DRUGS (12)
  1. CARVEDILOL. [Concomitant]
     Active Substance: CARVEDILOL
  2. GABAPENTIN. [Concomitant]
     Active Substance: GABAPENTIN
  3. LISINOPRIL. [Concomitant]
     Active Substance: LISINOPRIL
  4. VELTASSA [Suspect]
     Active Substance: PATIROMER
     Indication: HYPERKALAEMIA
     Dosage: 8.4 G, QD
     Route: 048
     Dates: start: 20160728, end: 2016
  5. ULORIC [Concomitant]
     Active Substance: FEBUXOSTAT
  6. GLIPIZIDE. [Concomitant]
     Active Substance: GLIPIZIDE
  7. BAYER ASPIRIN [Concomitant]
     Active Substance: ASPIRIN
  8. FUROSEMIDE. [Concomitant]
     Active Substance: FUROSEMIDE
  9. VITAMIN D [Concomitant]
     Active Substance: CHOLECALCIFEROL
  10. CATAPRES [Concomitant]
     Active Substance: CLONIDINE HYDROCHLORIDE
  11. NOVOLIN [Concomitant]
     Active Substance: INSULIN HUMAN
  12. FISH OIL [Concomitant]
     Active Substance: FISH OIL

REACTIONS (2)
  - Constipation [Not Recovered/Not Resolved]
  - Drug administration error [Unknown]
